FAERS Safety Report 5401256-9 (Version None)
Quarter: 2007Q3

REPORT INFORMATION
  Report Type: 
  Country: None (occurrence: None)
  Receive Date: 20070731
  Receipt Date: 20070725
  Transmission Date: 20080115
  Serious: Yes (Death, Congenital Anomaly)
  Sender: FDA-Public Use
  Company Number: JP-AVENTIS-200612620JP

PATIENT
  Age: 0 Day
  Sex: Female

DRUGS (3)
  1. LANTUS [Suspect]
     Dosage: DOSE: 12 UNITS
     Route: 064
  2. PENFILL R [Concomitant]
     Dosage: DOSE: 9 - 12 UNITS
     Route: 064
     Dates: start: 20030101
  3. NOVORAPID [Concomitant]
     Dosage: DOSE: 10 UNITS
     Route: 064

REACTIONS (2)
  - DRUG EXPOSURE DURING PREGNANCY [None]
  - RHABDOMYOSARCOMA [None]
